FAERS Safety Report 4884160-4 (Version None)
Quarter: 2006Q1

REPORT INFORMATION
  Report Type: 
  Country: None (occurrence: None)
  Receive Date: 20060118
  Receipt Date: 20051005
  Transmission Date: 20060701
  Serious: Yes (Death, Hospitalization)
  Sender: FDA-Public Use
  Company Number: US-MERCK-0510USA03393

PATIENT
  Age: 80 Year
  Sex: Female
  Weight: 61 kg

DRUGS (7)
  1. CLARITIN [Concomitant]
     Route: 065
  2. PAXIL [Concomitant]
     Route: 065
  3. CIMETIDINE [Concomitant]
     Route: 065
  4. SULFADIMETHOXINE AND TRIMETHOPRIM [Concomitant]
     Route: 065
  5. PROPOXYPHENE HYDROCHLORIDE [Concomitant]
     Route: 065
  6. TYLENOL (CAPLET) [Concomitant]
     Route: 065
  7. VIOXX [Suspect]
     Indication: MUSCULOSKELETAL PAIN
     Route: 048
     Dates: end: 20000101

REACTIONS (3)
  - CARDIOVASCULAR DISORDER [None]
  - DEATH [None]
  - MYOCARDIAL INFARCTION [None]
